FAERS Safety Report 5192690-3 (Version None)
Quarter: 2006Q4

REPORT INFORMATION
  Report Type: 
  Country: None (occurrence: None)
  Receive Date: 20061228
  Receipt Date: 20061003
  Transmission Date: 20070319
  Serious: Yes (Hospitalization)
  Sender: FDA-Public Use
  Company Number: FR-AVENTIS-200613403FR

PATIENT
  Age: 34 Year
  Sex: Female

DRUGS (3)
  1. RODOGYL [Suspect]
     Indication: ABSCESS
     Route: 048
     Dates: start: 20060718, end: 20060726
  2. RODOGYL [Suspect]
     Indication: PERICARDIAL DISEASE
     Route: 048
     Dates: start: 20060718, end: 20060726
  3. SORIATANE [Suspect]
     Indication: PSORIASIS
     Route: 048
     Dates: start: 20060522, end: 20060727

REACTIONS (20)
  - ACUTE PULMONARY OEDEMA [None]
  - ANGIOPATHY [None]
  - ANTINUCLEAR ANTIBODY POSITIVE [None]
  - AUTOIMMUNE DISORDER [None]
  - CARDIAC VALVE DISEASE [None]
  - CARDIOMYOPATHY [None]
  - CELL DEATH [None]
  - CHOLESTASIS [None]
  - DERMATITIS EXFOLIATIVE [None]
  - DRUG RASH WITH EOSINOPHILIA AND SYSTEMIC SYMPTOMS [None]
  - EJECTION FRACTION DECREASED [None]
  - INFLAMMATION [None]
  - KAWASAKI'S DISEASE [None]
  - LYMPHADENOPATHY [None]
  - MITRAL VALVE INCOMPETENCE [None]
  - MYOCARDITIS [None]
  - PYREXIA [None]
  - TROPONIN INCREASED [None]
  - VENTRICULAR HYPOKINESIA [None]
  - VIRAL INFECTION [None]
